FAERS Safety Report 4543097-0 (Version None)
Quarter: 2004Q4

REPORT INFORMATION
  Report Type: 
  Country: None (occurrence: None)
  Receive Date: 20041229
  Receipt Date: 20041220
  Transmission Date: 20050328
  Serious: Yes (Death)
  Sender: FDA-Public Use
  Company Number: DE-2004-036892

PATIENT
  Age: 49 Year
  Sex: Male

DRUGS (1)
  1. BETAFERON (INTERFERON BETA-1B) INJECTION, 250UG [Suspect]
     Indication: POLYNEUROPATHY IN MALIGNANT DISEASE
     Dosage: SUBCUTANEOUS
     Route: 058
     Dates: start: 20040101

REACTIONS (3)
  - ALCOHOLISM [None]
  - FOREIGN BODY ASPIRATION [None]
  - INJURY ASPHYXIATION [None]
